FAERS Safety Report 8244691-6 (Version None)
Quarter: 2012Q1

REPORT INFORMATION
  Report Type: 
  Country: None (occurrence: None)
  Receive Date: 20120329
  Receipt Date: 20120130
  Transmission Date: 20120608
  Serious: No
  Sender: FDA-Public Use
  Company Number: US-MYLANLABS-2012S1002252

PATIENT
  Age: 57 Year
  Sex: Male

DRUGS (3)
  1. TRAMADOL [Concomitant]
     Indication: PAIN
     Dates: start: 20080101
  2. FENTANYL-100 [Suspect]
     Dosage: Q72H
     Route: 062
  3. FENTANYL-100 [Suspect]
     Indication: HEADACHE
     Dosage: Q72H
     Route: 062

REACTIONS (6)
  - DRUG EFFECT DECREASED [None]
  - RESTLESS LEGS SYNDROME [None]
  - APPLICATION SITE VESICLES [None]
  - APPLICATION SITE ERYTHEMA [None]
  - HEADACHE [None]
  - DRUG WITHDRAWAL SYNDROME [None]
